FAERS Safety Report 6645911-1 (Version None)
Quarter: 2010Q1

REPORT INFORMATION
  Report Type: 
  Country: None (occurrence: None)
  Receive Date: 20100323
  Receipt Date: 20100312
  Transmission Date: 20100710
  Serious: Yes (Other)
  Sender: FDA-Public Use
  Company Number: PHEH2010US03072

PATIENT
  Sex: Female

DRUGS (2)
  1. DIOVAN [Suspect]
     Dosage: 80 MG
     Dates: start: 20100303
  2. COUMADIN [Concomitant]

REACTIONS (4)
  - COUGH [None]
  - HAEMORRHAGE [None]
  - RESPIRATORY TRACT INFECTION [None]
  - SPINAL DISORDER [None]
